FAERS Safety Report 20624387 (Version 2)
Quarter: 2022Q2

REPORT INFORMATION
  Report Type: Spontaneous
  Country: US (occurrence: US)
  Receive Date: 20220322
  Receipt Date: 20220622
  Transmission Date: 20220721
  Serious: Yes (Other)
  Sender: FDA-Public Use
  Company Number: US-SA-SAC20220316001514

PATIENT
  Age: 69 Year
  Sex: Female

DRUGS (1)
  1. ZANTAC [Suspect]
     Active Substance: RANITIDINE HYDROCHLORIDE
     Indication: Dyspepsia
     Dosage: 150 MG, QD
     Dates: start: 200102, end: 201501

REACTIONS (2)
  - Bladder cancer [Unknown]
  - Colorectal cancer [Unknown]

NARRATIVE: CASE EVENT DATE: 20010201
